FAERS Safety Report 12918652 (Version 1)
Quarter: 2016Q4

REPORT INFORMATION
  Report Type: Report from Study
  Country: CA (occurrence: CA)
  Receive Date: 20161107
  Receipt Date: 20161107
  Transmission Date: 20170207
  Serious: No
  Sender: FDA-Public Use
  Company Number: CA-THERATECHNOLOGIES, INC.-TH-2016-00139

PATIENT
  Age: 53 Year
  Sex: Male

DRUGS (2)
  1. EGRIFTA [Suspect]
     Active Substance: TESAMORELIN
     Indication: LIPODYSTROPHY ACQUIRED
     Route: 058
     Dates: start: 201609, end: 201610
  2. EGRIFTA [Suspect]
     Active Substance: TESAMORELIN
     Indication: HIV INFECTION
     Route: 058
     Dates: start: 20161024

REACTIONS (1)
  - Treatment noncompliance [Recovered/Resolved]

NARRATIVE: CASE EVENT DATE: 201610
